FAERS Safety Report 9001838 (Version 1)
Quarter: 2013Q1

REPORT INFORMATION
  Report Type: Report from Study
  Country: US (occurrence: US)
  Receive Date: 20130107
  Receipt Date: 20130107
  Transmission Date: 20140127
  Serious: Yes (Hospitalization)
  Sender: FDA-Public Use
  Company Number: US-ROCHE-1176638

PATIENT
  Sex: Female

DRUGS (2)
  1. RITUXIMAB [Suspect]
     Indication: PANCREATITIS
     Route: 042
     Dates: start: 201101
  2. RITUXIMAB [Suspect]
     Indication: SYSTEMIC LUPUS ERYTHEMATOSUS
     Route: 042
     Dates: start: 201209

REACTIONS (5)
  - Mouth ulceration [Unknown]
  - Lymphadenopathy [Unknown]
  - Pancreatitis [Unknown]
  - Abdominal pain [Unknown]
  - Diarrhoea [Unknown]
